FAERS Safety Report 9390760 (Version 5)
Quarter: 2014Q2

REPORT INFORMATION
  Report Type: Spontaneous
  Country: US (occurrence: US)
  Receive Date: 20130709
  Receipt Date: 20140624
  Transmission Date: 20141212
  Serious: Yes (Other)
  Sender: FDA-Public Use
  Company Number: US-BAYER-2013-083343

PATIENT
  Age: 21 Year
  Sex: Female
  Weight: 72.56 kg

DRUGS (1)
  1. MIRENA [Suspect]
     Indication: CONTRACEPTION
     Dosage: 20 MCG/24HR, CONT
     Route: 015
     Dates: start: 20090429, end: 20101027

REACTIONS (8)
  - Embedded device [None]
  - Genital haemorrhage [None]
  - Injury [None]
  - Pain [None]
  - Discomfort [None]
  - Dyspareunia [None]
  - Device dislocation [None]
  - Procedural pain [None]
